FAERS Safety Report 10556945 (Version 1)
Quarter: 2014Q4

REPORT INFORMATION
  Report Type: Spontaneous
  Country: US (occurrence: None)
  Receive Date: 20141030
  Receipt Date: 20141030
  Transmission Date: 20150529
  Serious: Yes (Disabling)
  Sender: FDA-Public Use
  Company Number: None

PATIENT
  Age: 53 Year
  Sex: Male
  Weight: 81.65 kg

DRUGS (5)
  1. ROBITUSSIN DM [Concomitant]
     Active Substance: DEXTROMETHORPHAN HYDROBROMIDE\GUAIFENESIN
  2. ADVAIR DISKUS [Suspect]
     Active Substance: FLUTICASONE PROPIONATE\SALMETEROL XINAFOATE
     Indication: ASTHMA
     Dosage: 250/50?1 PUFF?ONCE OR TWICE DAILY?BY MOUTH INHALE FROM DISKUS THEN RINCE MOUTH OUT WELL
     Dates: start: 1998, end: 2011
  3. PRAVASTATIN [Concomitant]
     Active Substance: PRAVASTATIN\PRAVASTATIN SODIUM
  4. ZANTAC [Concomitant]
     Active Substance: RANITIDINE HYDROCHLORIDE
  5. ASPIRIN. [Concomitant]
     Active Substance: ASPIRIN

REACTIONS (8)
  - Sneezing [None]
  - Chemical poisoning [None]
  - Tooth loss [None]
  - Tooth fracture [None]
  - Cough [None]
  - Dental caries [None]
  - Teeth brittle [None]
  - Myocardial infarction [None]

NARRATIVE: CASE EVENT DATE: 200907
